FAERS Safety Report 8370629-7 (Version None)
Quarter: 2012Q2

REPORT INFORMATION
  Report Type: 
  Country: None (occurrence: None)
  Receive Date: 20120518
  Receipt Date: 20120514
  Transmission Date: 20120825
  Serious: Yes (Hospitalization, Other)
  Sender: FDA-Public Use
  Company Number: GB-ELI_LILLY_AND_COMPANY-GB201111006385

PATIENT
  Sex: Male

DRUGS (13)
  1. HUMULIN N [Suspect]
     Indication: TYPE 2 DIABETES MELLITUS
     Dosage: 30 U EACH MORNING
     Route: 065
  2. AMLODIPINE BESYLATE [Concomitant]
  3. ASPIRIN [Concomitant]
     Dosage: 75 MG, QD
  4. LASOPRAZOLE [Concomitant]
     Dosage: 30 MG, QD
  5. HUMULIN N [Suspect]
     Dosage: 30 U, EACH MORNING
  6. ISOSORBIDE MONONITRATE [Concomitant]
     Dosage: 10 MG, BID
  7. FUROSEMIDE [Concomitant]
     Dosage: 40 MG, BID
  8. HUMULIN N [Suspect]
     Dosage: 14 U, EACH EVENING
  9. LACTULOSE [Concomitant]
     Dosage: 15 MG, BID
  10. ATORVASTATIN CALCIUM [Concomitant]
     Dosage: 40 MG, QD
  11. HUMULIN N [Suspect]
     Dosage: 14 UNITS EACH EVENING
     Route: 065
  12. HYDRALAZINE HCL [Concomitant]
  13. METOPROLOL TARTRATE [Concomitant]
     Dosage: 25 MG, QD

REACTIONS (7)
  - FOOD AVERSION [None]
  - PALLOR [None]
  - DYSPEPSIA [None]
  - ORTHOSTATIC HYPOTENSION [None]
  - OROPHARYNGEAL PAIN [None]
  - WEIGHT DECREASED [None]
  - HYPOGLYCAEMIC UNCONSCIOUSNESS [None]
